FAERS Safety Report 12130070 (Version 1)
Quarter: 2016Q1

REPORT INFORMATION
  Report Type: Spontaneous
  Country: US (occurrence: US)
  Receive Date: 20160229
  Receipt Date: 20160229
  Transmission Date: 20160526
  Serious: No
  Sender: FDA-Public Use
  Company Number: US-ACORDA-ACO_23568_2010

PATIENT
  Age: 64 Year
  Sex: Female
  Weight: 46 kg

DRUGS (6)
  1. AVONEX [Concomitant]
     Active Substance: INTERFERON BETA-1A
     Dosage: DF
     Dates: start: 1993
  2. NEURONTIN [Concomitant]
     Active Substance: GABAPENTIN
     Dosage: DF
     Dates: start: 2003
  3. UROXATRAL [Suspect]
     Active Substance: ALFUZOSIN HYDROCHLORIDE
     Indication: URINARY RETENTION
     Dosage: DF
     Route: 048
     Dates: start: 20100421, end: 201005
  4. AMBIEN [Concomitant]
     Active Substance: ZOLPIDEM TARTRATE
     Dosage: DF
     Dates: start: 2003
  5. AMPYRA [Suspect]
     Active Substance: DALFAMPRIDINE
     Indication: GAIT DISTURBANCE
     Dosage: 10 MG, BID
     Route: 048
     Dates: start: 20100415, end: 20100518
  6. DARVOCET [Concomitant]
     Active Substance: ACETAMINOPHEN\PROPOXYPHENE HYDROCHLORIDE
     Dosage: DF
     Dates: start: 2003

REACTIONS (7)
  - Back pain [Not Recovered/Not Resolved]
  - Insomnia [Recovered/Resolved]
  - Urinary retention [Recovered/Resolved]
  - Condition aggravated [Not Recovered/Not Resolved]
  - Dizziness [Recovered/Resolved]
  - Fall [Recovered/Resolved]
  - Tendonitis [Recovered/Resolved]

NARRATIVE: CASE EVENT DATE: 201004
